FAERS Safety Report 11336609 (Version 2)
Quarter: 2015Q3

REPORT INFORMATION
  Report Type: Report from Study
  Country: BR (occurrence: BR)
  Receive Date: 20150804
  Receipt Date: 20150812
  Transmission Date: 20151125
  Serious: Yes (Hospitalization)
  Sender: FDA-Public Use
  Company Number: PHHO2015BR012137

PATIENT
  Age: 21 Year
  Sex: Female
  Weight: 50.85 kg

DRUGS (2)
  1. MESIGYNA [Concomitant]
     Indication: CONTRACEPTION
     Dosage: MONTH
     Route: 030
     Dates: start: 20150416
  2. FTY [Suspect]
     Active Substance: FINGOLIMOD HYDROCHLORIDE
     Indication: RELAPSING-REMITTING MULTIPLE SCLEROSIS
     Route: 048
     Dates: start: 20150305

REACTIONS (3)
  - Neurological decompensation [Recovered/Resolved]
  - Pyrexia [Recovered/Resolved]
  - Leukocytosis [Recovered/Resolved]

NARRATIVE: CASE EVENT DATE: 20150719
